FAERS Safety Report 17427521 (Version 1)
Quarter: 2020Q1

REPORT INFORMATION
  Report Type: Spontaneous
  Country: US (occurrence: US)
  Receive Date: 20200217
  Receipt Date: 20200217
  Transmission Date: 20200409
  Serious: Yes (Hospitalization)
  Sender: FDA-Public Use
  Company Number: US-ASTRAZENECA-2020SE21812

PATIENT
  Age: 703 Day
  Sex: Male
  Weight: 12.7 kg

DRUGS (1)
  1. SYNAGIS [Suspect]
     Active Substance: PALIVIZUMAB
     Route: 030

REACTIONS (4)
  - Gastritis [Unknown]
  - Escherichia infection [Unknown]
  - Pseudomonas infection [Unknown]
  - Pancreatitis [Unknown]

NARRATIVE: CASE EVENT DATE: 20200128
